FAERS Safety Report 21659322 (Version 3)
Quarter: 2023Q1

REPORT INFORMATION
  Report Type: Spontaneous
  Country: FR (occurrence: FR)
  Receive Date: 20221129
  Receipt Date: 20230125
  Transmission Date: 20230418
  Serious: Yes (Death, Other)
  Sender: FDA-Public Use
  Company Number: FR-INCYTE CORPORATION-2022IN011201

PATIENT

DRUGS (12)
  1. TAFASITAMAB [Suspect]
     Active Substance: TAFASITAMAB
     Indication: Diffuse large B-cell lymphoma
     Dosage: 900 UNK
     Route: 065
     Dates: end: 20220630
  2. TAFASITAMAB [Suspect]
     Active Substance: TAFASITAMAB
     Dosage: 12 MILLIGRAM/KILOGRAM DAY 1, DAY 4, DAY 8, DAY 15, DAY 22
     Route: 042
     Dates: start: 20220513
  3. TAHOR [Concomitant]
     Active Substance: ATORVASTATIN CALCIUM
     Indication: Dyslipidaemia
     Dosage: UNK
     Route: 065
     Dates: start: 20210515
  4. FUROSEMIDE [Concomitant]
     Active Substance: FUROSEMIDE
     Indication: Hypertension
     Dosage: UNK
     Route: 065
     Dates: start: 20210515
  5. CALCIUM [Concomitant]
     Active Substance: CALCIUM
     Indication: Osteoporosis
     Dosage: UNK
     Route: 065
     Dates: start: 20210515
  6. EUPANTOL [Concomitant]
     Active Substance: PANTOPRAZOLE SODIUM
     Indication: Dyspepsia
     Dosage: UNK
     Route: 065
     Dates: start: 20210515
  7. LYRICA [Concomitant]
     Active Substance: PREGABALIN
     Indication: Neuralgia
     Dosage: UNK
     Route: 065
     Dates: start: 20210515
  8. FENTANYL [Concomitant]
     Active Substance: FENTANYL
     Indication: Intervertebral disc protrusion
     Dosage: UNK
     Route: 065
     Dates: start: 20210515
  9. OXYCODONE [Concomitant]
     Active Substance: OXYCODONE
     Indication: Intervertebral disc protrusion
     Dosage: UNK
     Route: 065
     Dates: start: 20210515
  10. REVLIMID [Concomitant]
     Active Substance: LENALIDOMIDE
     Indication: Diffuse large B-cell lymphoma
     Dosage: 20 MILLIGRAM (C1)
     Route: 042
  11. REVLIMID [Concomitant]
     Active Substance: LENALIDOMIDE
     Dosage: 15 MILLIGRAM (C2)
     Route: 042
  12. REVLIMID [Concomitant]
     Active Substance: LENALIDOMIDE
     Dosage: 20 MILLIGRAM (C1)
     Route: 042

REACTIONS (11)
  - Diffuse large B-cell lymphoma [Fatal]
  - Disease progression [Fatal]
  - Pancytopenia [Unknown]
  - Haemoglobinaemia [Unknown]
  - Erysipelas [Unknown]
  - Necrosis [Unknown]
  - Escherichia sepsis [Unknown]
  - Chronic lymphocytic leukaemia [Unknown]
  - Thrombocytopenia [Unknown]
  - Richter^s syndrome [Unknown]
  - Urinary tract infection [Unknown]
